FAERS Safety Report 18512610 (Version 1)
Quarter: 2020Q4

REPORT INFORMATION
  Report Type: Report from Study
  Country: IN (occurrence: IN)
  Receive Date: 20201117
  Receipt Date: 20201117
  Transmission Date: 20210114
  Serious: Yes (Other)
  Sender: FDA-Public Use
  Company Number: NVSC2020IN304212

PATIENT
  Age: 55 Year
  Sex: Female

DRUGS (1)
  1. KRYXANA [Suspect]
     Active Substance: RIBOCICLIB
     Indication: HYPOPARATHYROIDISM
     Dosage: 600 MG, QD
     Route: 048
     Dates: start: 20190508, end: 20201023

REACTIONS (2)
  - Product use in unapproved indication [Unknown]
  - Hypoparathyroidism [Not Recovered/Not Resolved]

NARRATIVE: CASE EVENT DATE: 20201023
